FAERS Safety Report 26100012 (Version 1)
Quarter: 2025Q4

REPORT INFORMATION
  Report Type: Report from Study
  Country: CH (occurrence: CH)
  Receive Date: 20251128
  Receipt Date: 20251128
  Transmission Date: 20260118
  Serious: Yes (Other)
  Sender: ROCHE
  Company Number: CH-ROCHE-10000446603

PATIENT

DRUGS (1)
  1. VABYSMO [Suspect]
     Active Substance: FARICIMAB-SVOA
     Indication: Neovascular age-related macular degeneration
     Route: 050

REACTIONS (4)
  - Iridocyclitis [Recovered/Resolved]
  - Retinal haemorrhage [Unknown]
  - Retinal pigment epithelial tear [Unknown]
  - Conjunctival cyst [Unknown]
